FAERS Safety Report 20525585 (Version 1)
Quarter: 2022Q1

REPORT INFORMATION
  Report Type: Report from Study
  Country: US (occurrence: US)
  Receive Date: 20220228
  Receipt Date: 20220228
  Transmission Date: 20220423
  Serious: Yes (Death, Other)
  Sender: FDA-Public Use
  Company Number: US-GILEAD-2022-0571420

PATIENT
  Age: 49 Year
  Sex: Male

DRUGS (9)
  1. AMBRISENTAN [Suspect]
     Active Substance: AMBRISENTAN
     Indication: Pulmonary arterial hypertension
     Dosage: 10 MG, QD
     Route: 065
  2. WARFARIN SODIUM [Concomitant]
     Active Substance: WARFARIN SODIUM
  3. OXYCODONE AND ACETAMINOPHEN [Concomitant]
     Active Substance: ACETAMINOPHEN\OXYCODONE HYDROCHLORIDE
  4. SOTALOL [Concomitant]
     Active Substance: SOTALOL
  5. BUMETANIDE [Concomitant]
     Active Substance: BUMETANIDE
  6. OMEPRAZOLE [Concomitant]
     Active Substance: OMEPRAZOLE
  7. MUCINEX [Concomitant]
     Active Substance: GUAIFENESIN
  8. ALBUTEROL [Concomitant]
     Active Substance: ALBUTEROL
  9. IBUPROFEN [Concomitant]
     Active Substance: IBUPROFEN

REACTIONS (1)
  - Death [Fatal]

NARRATIVE: CASE EVENT DATE: 20220218
